FAERS Safety Report 6692724-0 (Version None)
Quarter: 2010Q2

REPORT INFORMATION
  Report Type: 
  Country: None (occurrence: None)
  Receive Date: 20100422
  Receipt Date: 20100414
  Transmission Date: 20101027
  Serious: Yes (Hospitalization)
  Sender: FDA-Public Use
  Company Number: CL-ROCHE-697496

PATIENT
  Age: 21 Year
  Sex: Female

DRUGS (12)
  1. MIRCERA [Suspect]
     Indication: ANAEMIA
     Dosage: FREQUENCY: 1 DOSE PER MONTH
     Route: 065
     Dates: start: 20091201
  2. MIRCERA [Suspect]
     Route: 065
     Dates: start: 20100101
  3. MIRCERA [Suspect]
     Route: 065
     Dates: start: 20100201
  4. MIRCERA [Suspect]
     Route: 065
     Dates: start: 20100301
  5. CELLCEPT [Suspect]
     Indication: DRUG USE FOR UNKNOWN INDICATION
     Route: 065
     Dates: start: 20091001
  6. EPOETIN [Concomitant]
     Indication: ANAEMIA
  7. CYCLOPHOSPHAMIDE [Concomitant]
  8. CALCIUM [Concomitant]
     Dosage: START DATE REPORTED: MORE THAN A YEAR
  9. IRON [Concomitant]
     Dosage: START DATE REPORTED: MORE THAN A YEAR
  10. PREDNISONE [Concomitant]
     Dosage: START DATE REPORTED: MORE THAN A YEAR
  11. FUROSEMIDE [Concomitant]
     Dosage: START DATE REPORTED: MORE THAN A YEAR
  12. ENALAPRIL MALEATE [Concomitant]
     Dosage: START DATE REPORTED: MORE THAN A YEAR

REACTIONS (2)
  - ANAEMIA [None]
  - HAEMATOCRIT DECREASED [None]
